FAERS Safety Report 24009286 (Version 1)
Quarter: 2024Q2

REPORT INFORMATION
  Report Type: Spontaneous
  Country: TW (occurrence: TW)
  Receive Date: 20240625
  Receipt Date: 20240625
  Transmission Date: 20240716
  Serious: Yes (Other)
  Sender: FDA-Public Use
  Company Number: TW-MYLANLABS-2024M1057216

PATIENT
  Age: 60 Year
  Sex: Female

DRUGS (3)
  1. PACLITAXEL [Suspect]
     Active Substance: PACLITAXEL
     Indication: Invasive ductal breast carcinoma
     Dosage: 80 MILLIGRAM/SQ. METER, QW, FOR THE FIRST 3 TREATMENT SESSIONS, INTRAVENOUS INFUSION
     Route: 042
  2. PACLITAXEL [Suspect]
     Active Substance: PACLITAXEL
     Dosage: 70 MILLIGRAM/SQ. METER, QW,FOR NEXT 4 TREATMENT SESSIONS, INTRAVENOUS INFUSION
     Route: 042
  3. PACLITAXEL [Suspect]
     Active Substance: PACLITAXEL
     Dosage: 60 MILLIGRAM/SQ. METER, INTRAVENOUS INFUSION
     Route: 042

REACTIONS (1)
  - Periarticular thenar erythema with onycholysis [Recovering/Resolving]
